FAERS Safety Report 21239114 (Version 1)
Quarter: 2022Q3

REPORT INFORMATION
  Report Type: Spontaneous
  Country: IN (occurrence: IN)
  Receive Date: 20220822
  Receipt Date: 20220822
  Transmission Date: 20221027
  Serious: Yes (Hospitalization)
  Sender: FDA-Public Use
  Company Number: IN-VIRTUS PHARMACEUTICALS, LLC-2022VTS00027

PATIENT
  Age: 32 Year
  Sex: Female

DRUGS (1)
  1. TRANEXAMIC ACID [Suspect]
     Active Substance: TRANEXAMIC ACID
     Dosage: 160 MG, ONCE
     Route: 037

REACTIONS (5)
  - Product administration error [Recovered/Resolved]
  - Ventricular tachycardia [Recovered/Resolved]
  - Neurotoxicity [Recovered/Resolved]
  - Myoclonus [Recovered/Resolved]
  - Seizure [None]
